FAERS Safety Report 4915006-3 (Version None)
Quarter: 2006Q1

REPORT INFORMATION
  Report Type: 
  Country: None (occurrence: None)
  Receive Date: 20060215
  Receipt Date: 20060215
  Transmission Date: 20060701
  Serious: Yes (Hospitalization)
  Sender: FDA-Public Use
  Company Number: None

PATIENT
  Age: 66 Year
  Sex: Male
  Weight: 73.0291 kg

DRUGS (16)
  1. CEFAZOLIN [Suspect]
     Indication: WOUND INFECTION
     Dosage: 1 GRAM   Q8H   IV
     Route: 042
     Dates: start: 20060118, end: 20060201
  2. ASPIRIN [Concomitant]
  3. CITALOPRAM [Concomitant]
  4. DROPERIDOL [Concomitant]
  5. FELODIPINE [Concomitant]
  6. FLUCONAZOLE [Concomitant]
  7. FUROSEMIDE [Concomitant]
  8. GUAIFENESIN [Concomitant]
  9. HUMULIN N [Concomitant]
  10. HUMULIN R [Concomitant]
  11. METOPROLOL [Concomitant]
  12. OMEPRAZOLE [Concomitant]
  13. OXYCODONE AND ACETAMINOPHEN [Concomitant]
  14. SIMVASTATIN [Concomitant]
  15. WARFARIN SODIUM [Concomitant]
  16. CEFAZOLIN INJ CEFAZOLIN *PREMIX* BAG [Concomitant]

REACTIONS (4)
  - INTERNATIONAL NORMALISED RATIO INCREASED [None]
  - LEUKOCYTOCLASTIC VASCULITIS [None]
  - OCCULT BLOOD POSITIVE [None]
  - PALPABLE PURPURA [None]
